FAERS Safety Report 16965124 (Version 1)
Quarter: 2019Q4

REPORT INFORMATION
  Report Type: Spontaneous
  Country: PT (occurrence: PT)
  Receive Date: 20191028
  Receipt Date: 20191028
  Transmission Date: 20200122
  Serious: Yes (Other)
  Sender: FDA-Public Use
  Company Number: PT-SCIEGEN PHARMACEUTICALS INC-2019SCILIT00298

PATIENT
  Age: 29 Year
  Sex: Female

DRUGS (2)
  1. ARIPIPRAZOLE. [Suspect]
     Active Substance: ARIPIPRAZOLE
  2. OLANZAPINE. [Suspect]
     Active Substance: OLANZAPINE

REACTIONS (3)
  - Drug titration error [None]
  - Hallucination, olfactory [Recovered/Resolved]
  - Delusional disorder, unspecified type [Recovered/Resolved]
